FAERS Safety Report 10145868 (Version 1)
Quarter: 2014Q2

REPORT INFORMATION
  Report Type: Spontaneous
  Country: US (occurrence: US)
  Receive Date: 20140501
  Receipt Date: 20140501
  Transmission Date: 20141212
  Serious: No
  Sender: FDA-Public Use
  Company Number: US-ABBVIE-13P-163-1087331-00

PATIENT
  Age: 14 Year
  Sex: Female
  Weight: 35.05 kg

DRUGS (2)
  1. CREON 24000 UNIT [Suspect]
     Indication: CYSTIC FIBROSIS
     Dosage: THREE CAPSULES WITH MEALS
     Route: 048
     Dates: start: 20130504, end: 20130506
  2. CREON 24000 UNIT [Suspect]
     Indication: DIARRHOEA
     Dosage: 1 WITH EACH MEAL
     Route: 048
     Dates: start: 20130506

REACTIONS (2)
  - Hypophagia [Not Recovered/Not Resolved]
  - Decreased appetite [Not Recovered/Not Resolved]
